FAERS Safety Report 6584348-0 (Version None)
Quarter: 2010Q1

REPORT INFORMATION
  Report Type: 
  Country: None (occurrence: None)
  Receive Date: 20100216
  Receipt Date: 20100209
  Transmission Date: 20100710
  Serious: No
  Sender: FDA-Public Use
  Company Number: US-ABBOTT-10P-163-0622857-00

PATIENT
  Sex: Female
  Weight: 78.542 kg

DRUGS (2)
  1. SIMCOR [Suspect]
     Indication: BLOOD CHOLESTEROL INCREASED
     Dosage: 500/20 MG AT NIGHT
     Dates: start: 20081201
  2. SIMCOR [Suspect]
     Indication: BLOOD TRIGLYCERIDES ABNORMAL

REACTIONS (3)
  - BURSITIS [None]
  - FLUSHING [None]
  - MUSCULOSKELETAL PAIN [None]
